FAERS Safety Report 5208958-8 (Version None)
Quarter: 2007Q1

REPORT INFORMATION
  Report Type: 
  Country: None (occurrence: None)
  Receive Date: 20070116
  Receipt Date: 20070108
  Transmission Date: 20070707
  Serious: Yes (Life-Threatening)
  Sender: FDA-Public Use
  Company Number: FR-AVENTIS-200710124FR

PATIENT
  Age: 68 Year
  Sex: Male
  Weight: 115 kg

DRUGS (11)
  1. LOVENOX [Suspect]
     Route: 058
     Dates: start: 20061109, end: 20061123
  2. VANCOMYCIN [Suspect]
     Route: 042
     Dates: start: 20061109, end: 20061124
  3. NEXIUM [Concomitant]
     Route: 048
     Dates: start: 20061109, end: 20061110
  4. PERFALGAN [Concomitant]
     Indication: PAIN
     Route: 042
     Dates: start: 20061109, end: 20061110
  5. KETOPROFEN [Concomitant]
     Indication: PAIN
     Route: 042
     Dates: start: 20061109, end: 20061110
  6. APRANAX                            /00256201/ [Concomitant]
     Indication: PAIN
     Route: 048
     Dates: start: 20061109, end: 20061124
  7. ZOCOR [Concomitant]
     Route: 048
  8. TROXERUTINE [Concomitant]
     Route: 048
  9. ART [Concomitant]
     Route: 048
  10. XATRAL                             /00975302/ [Concomitant]
     Route: 048
  11. MICARDIS [Concomitant]
     Route: 048

REACTIONS (1)
  - PANCYTOPENIA [None]
